FAERS Safety Report 8723043 (Version 2)
Quarter: 2012Q4

REPORT INFORMATION
  Report Type: 
  Country: GB (occurrence: GB)
  Receive Date: 20120814
  Receipt Date: 20121226
  Transmission Date: 20130627
  Serious: Yes (Hospitalization)
  Sender: FDA-Public Use
  Company Number: PHFR2012GB004424

PATIENT
  Age: 70 Year
  Sex: Female

DRUGS (9)
  1. ONBREZ [Suspect]
     Indication: CHRONIC OBSTRUCTIVE PULMONARY DISEASE
     Dosage: 300 ug, QD
     Dates: start: 20120701, end: 20120807
  2. SERETIDE [Interacting]
     Dosage: 1 DF, BID
     Dates: end: 20120807
  3. ASPIRIN [Concomitant]
  4. BISOPROLOL [Concomitant]
  5. CITALOPRAM [Concomitant]
  6. LANSOPRAZOLE [Concomitant]
  7. RAMIPRIL A [Concomitant]
  8. SALBUTAMOL [Concomitant]
  9. TIOTROPIUM BROMIDE [Concomitant]

REACTIONS (3)
  - Atrial fibrillation [Recovering/Resolving]
  - Acute pulmonary oedema [Unknown]
  - Labelled drug-drug interaction medication error [Unknown]
